FAERS Safety Report 22166658 (Version 1)
Quarter: 2023Q2

REPORT INFORMATION
  Report Type: Spontaneous
  Country: GB (occurrence: GB)
  Receive Date: 20230403
  Receipt Date: 20230403
  Transmission Date: 20230722
  Serious: Yes (Life-Threatening)
  Sender: FDA-Public Use
  Company Number: None

PATIENT
  Age: 75 Year
  Sex: Male
  Weight: 97 kg

DRUGS (7)
  1. MONTELUKAST SODIUM [Suspect]
     Active Substance: MONTELUKAST SODIUM
     Indication: Asthma-chronic obstructive pulmonary disease overlap syndrome
     Dosage: 10 MILLIGRAM, QD
     Route: 048
     Dates: start: 20221001, end: 20221101
  2. FLUTICASONE FUROATE\VILANTEROL TRIFENATATE [Concomitant]
     Active Substance: FLUTICASONE FUROATE\VILANTEROL TRIFENATATE
     Indication: Asthma-chronic obstructive pulmonary disease overlap syndrome
     Dosage: UNK
  3. DYMISTA [Concomitant]
     Active Substance: AZELASTINE HYDROCHLORIDE\FLUTICASONE PROPIONATE
     Indication: Hypersensitivity
     Dosage: UNK
  4. FLUOXETINE [Concomitant]
     Active Substance: FLUOXETINE HYDROCHLORIDE
     Indication: Depression
     Dosage: FOR 20 YEARS
  5. ALBUTEROL [Concomitant]
     Active Substance: ALBUTEROL
     Indication: Asthma
     Dosage: UNK
  6. APIXABAN [Concomitant]
     Active Substance: APIXABAN
     Indication: Arrhythmia
     Dosage: UNK
  7. BISOPROLOL [Concomitant]
     Active Substance: BISOPROLOL
     Indication: Arrhythmia
     Dosage: UNK

REACTIONS (1)
  - Depression [Recovered/Resolved]

NARRATIVE: CASE EVENT DATE: 20221003
